FAERS Safety Report 17711712 (Version 1)
Quarter: 2020Q2

REPORT INFORMATION
  Report Type: Spontaneous
  Country: US (occurrence: US)
  Receive Date: 20200427
  Receipt Date: 20200427
  Transmission Date: 20200714
  Serious: No
  Sender: FDA-Public Use
  Company Number: US-ARBOR PHARMACEUTICALS, LLC-US-2020ARB000117

PATIENT
  Sex: Male

DRUGS (1)
  1. TRIPTODUR [Suspect]
     Active Substance: TRIPTORELIN
     Indication: ENDOCRINE DISORDER
     Dosage: UNK, SINGLE
     Route: 014

REACTIONS (2)
  - Off label use [Unknown]
  - Product prescribing error [Unknown]
